FAERS Safety Report 25671036 (Version 1)
Quarter: 2025Q3

REPORT INFORMATION
  Report Type: Other
  Country: EU (occurrence: EU)
  Receive Date: 20250812
  Receipt Date: 20250812
  Transmission Date: 20251021
  Serious: Yes (Other)
  Sender: Atnahs Healthcare
  Company Number: EU-ATNAHS-2025-PMNV-FR000199

PATIENT

DRUGS (2)
  1. DIAZEPAM [Suspect]
     Active Substance: DIAZEPAM
     Indication: Drug use disorder
     Route: 048
     Dates: start: 202504
  2. ZOPICLONE [Suspect]
     Active Substance: ZOPICLONE
     Indication: Sleep disorder therapy
     Route: 065
     Dates: start: 202504

REACTIONS (1)
  - Drug use disorder [Recovered/Resolved]

NARRATIVE: CASE EVENT DATE: 20250409
